FAERS Safety Report 10051610 (Version 1)
Quarter: 2014Q1

REPORT INFORMATION
  Report Type: Spontaneous
  Country: US (occurrence: None)
  Receive Date: 20140331
  Receipt Date: 20140331
  Transmission Date: 20141002
  Serious: Yes (Other)
  Sender: FDA-Public Use
  Company Number: LIT-14-0009-W

PATIENT
  Age: 31 Year
  Sex: Male

DRUGS (1)
  1. BUPROPION [Suspect]
     Route: 048

REACTIONS (8)
  - Intentional overdose [None]
  - Sinus tachycardia [None]
  - Convulsion [None]
  - Electrocardiogram QRS complex prolonged [None]
  - Electrocardiogram QT prolonged [None]
  - Atrial fibrillation [None]
  - Extrasystoles [None]
  - Cardiotoxicity [None]
